FAERS Safety Report 10195480 (Version 1)
Quarter: 2014Q2

REPORT INFORMATION
  Report Type: Spontaneous
  Country: US (occurrence: US)
  Receive Date: 20140526
  Receipt Date: 20140526
  Transmission Date: 20141212
  Serious: No
  Sender: FDA-Public Use
  Company Number: US-BAYER-2014-067539

PATIENT
  Age: 73 Year
  Sex: Male
  Weight: 91 kg

DRUGS (2)
  1. ALEVE GELCAPS [Suspect]
     Indication: BACK PAIN
     Dosage: 3 DF, Q4HR
     Route: 048
  2. ONE A DAY MEN^S HEALTH FORMULA [Concomitant]
     Dosage: UNK

REACTIONS (2)
  - Overdose [None]
  - Incorrect drug administration duration [None]
